FAERS Safety Report 9914053 (Version 2)
Quarter: 2014Q3

REPORT INFORMATION
  Report Type: Spontaneous
  Country: US (occurrence: US)
  Receive Date: 20140220
  Receipt Date: 20140714
  Transmission Date: 20150326
  Serious: Yes (Death, Hospitalization, Other)
  Sender: FDA-Public Use
  Company Number: US-009507513-1402USA008048

PATIENT
  Sex: Male
  Weight: 129.25 kg

DRUGS (7)
  1. DIGOXIN. [Concomitant]
     Active Substance: DIGOXIN
     Indication: ARRHYTHMIA
     Dosage: UNK
     Dates: start: 20060727
  2. HUMALOG [Concomitant]
     Active Substance: INSULIN LISPRO
     Indication: TYPE 2 DIABETES MELLITUS
     Dosage: UNK
     Dates: start: 20110420
  3. CELEXA [Concomitant]
     Active Substance: CITALOPRAM HYDROBROMIDE
     Indication: DEPRESSION
     Dosage: UNK
     Dates: start: 20090618
  4. JANUVIA [Suspect]
     Active Substance: SITAGLIPTIN PHOSPHATE
     Indication: TYPE 2 DIABETES MELLITUS
     Dosage: 100 MG, QD
     Route: 048
     Dates: start: 20100918, end: 20120917
  5. BYETTA [Suspect]
     Active Substance: EXENATIDE
     Indication: TYPE 2 DIABETES MELLITUS
     Dosage: 5 MICROGRAM, BID
     Dates: start: 20110113, end: 20110212
  6. LISINOPRIL. [Concomitant]
     Active Substance: LISINOPRIL
     Indication: HYPERTENSION
     Dosage: UNK
     Dates: start: 20110420
  7. FLOMAX [Concomitant]
     Active Substance: TAMSULOSIN HYDROCHLORIDE
     Indication: PROSTATOMEGALY
     Dosage: UNK
     Dates: start: 20061227

REACTIONS (18)
  - Spinal osteoarthritis [Unknown]
  - Nephrolithiasis [Unknown]
  - Prostatic specific antigen increased [Unknown]
  - Pancreatic carcinoma metastatic [Fatal]
  - Thrombosis [Unknown]
  - Arteriosclerosis [Unknown]
  - Metastases to adrenals [Unknown]
  - Metastases to liver [Unknown]
  - Metastases to kidney [Unknown]
  - Metastases to lung [Unknown]
  - Metastases to pleura [Unknown]
  - Mucosal inflammation [Unknown]
  - Renal cyst [Unknown]
  - Diverticulum intestinal [Unknown]
  - Metastases to lymph nodes [Unknown]
  - Metastases to stomach [Unknown]
  - Insulin-requiring type 2 diabetes mellitus [Unknown]
  - Hiatus hernia [Unknown]

NARRATIVE: CASE EVENT DATE: 20110420
